FAERS Safety Report 9541943 (Version 1)
Quarter: 2013Q3

REPORT INFORMATION
  Report Type: Spontaneous
  Country: US (occurrence: None)
  Receive Date: 20130919
  Receipt Date: 20130919
  Transmission Date: 20140515
  Serious: Yes (Hospitalization)
  Sender: FDA-Public Use
  Company Number: None

PATIENT
  Age: 74 Year
  Sex: Female
  Weight: 54.43 kg

DRUGS (1)
  1. AVELOX [Suspect]
     Indication: INFLUENZA
     Route: 048

REACTIONS (6)
  - Dysgeusia [None]
  - Hypoaesthesia [None]
  - Dry eye [None]
  - Dry mouth [None]
  - Tremor [None]
  - Panic reaction [None]
